FAERS Safety Report 11439330 (Version 1)
Quarter: 2015Q3

REPORT INFORMATION
  Report Type: Spontaneous
  Country: US (occurrence: None)
  Receive Date: 20150831
  Receipt Date: 20150831
  Transmission Date: 20151125
  Serious: No
  Sender: FDA-Public Use
  Company Number: None

PATIENT
  Age: 60 Year
  Sex: Female

DRUGS (1)
  1. METFORMIN HYDROCHLORIDE. [Suspect]
     Active Substance: METFORMIN HYDROCHLORIDE
     Indication: BLOOD GLUCOSE ABNORMAL
     Dosage: #120
     Route: 048
     Dates: start: 20150714, end: 20150820

REACTIONS (2)
  - Diabetes mellitus inadequate control [None]
  - Product substitution issue [None]

NARRATIVE: CASE EVENT DATE: 20150801
